FAERS Safety Report 6381867-7 (Version None)
Quarter: 2009Q3

REPORT INFORMATION
  Report Type: 
  Country: None (occurrence: None)
  Receive Date: 20090925
  Receipt Date: 20090917
  Transmission Date: 20100115
  Serious: Yes (Other)
  Sender: FDA-Public Use
  Company Number: TRP_06438_2009

PATIENT
  Sex: Female

DRUGS (2)
  1. INFERGEN [Suspect]
     Indication: HEPATITIS C
     Dosage: (15 ?G 3X/WEEK SUBCUTANEOUS)
     Route: 058
     Dates: start: 20090216
  2. RIBAVIRIN 200 [Suspect]
     Indication: HEPATITIS C
     Dosage: (800 BID)

REACTIONS (2)
  - INCOHERENT [None]
  - REPETITIVE SPEECH [None]
